FAERS Safety Report 4886857-9 (Version None)
Quarter: 2006Q1

REPORT INFORMATION
  Report Type: 
  Country: None (occurrence: None)
  Receive Date: 20060119
  Receipt Date: 20060106
  Transmission Date: 20060701
  Serious: Yes (Other)
  Sender: FDA-Public Use
  Company Number: 2006005556

PATIENT
  Sex: Female

DRUGS (1)
  1. XALATAN [Suspect]
     Indication: HYPERTONIA
     Dosage: OPHTHALMIC
     Route: 047

REACTIONS (2)
  - ANXIETY [None]
  - IRITIC MELANOMA [None]
